FAERS Safety Report 7426001-7 (Version None)
Quarter: 2011Q2

REPORT INFORMATION
  Report Type: 
  Country: None (occurrence: None)
  Receive Date: 20110420
  Receipt Date: 20110414
  Transmission Date: 20111010
  Serious: Yes (Death)
  Sender: FDA-Public Use
  Company Number: JP-ROCHE-771605

PATIENT
  Sex: Male

DRUGS (26)
  1. INFREE [Suspect]
     Indication: RHEUMATOID ARTHRITIS
     Route: 048
     Dates: start: 20090205
  2. AMLODIN [Concomitant]
     Dosage: DOSE FORM: PERORAL AGENT
     Route: 048
  3. AMARYL [Concomitant]
     Dosage: DOSE FORM: PERORAL AGENT
     Route: 048
  4. PREDONINE [Concomitant]
     Dosage: DOSE FORM: PERORAL AGENT
     Route: 048
     Dates: start: 20090205
  5. LENDORMIN [Concomitant]
     Dosage: DOSE FORM: PERORAL AGENT
     Route: 048
     Dates: start: 20090205
  6. LIPITOR [Concomitant]
     Dosage: DOSE FORM: PERORAL AGENT
     Route: 048
  7. TOCILIZUMAB [Suspect]
     Route: 041
     Dates: start: 20090602, end: 20090602
  8. TOCILIZUMAB [Suspect]
     Route: 041
     Dates: start: 20091119, end: 20091119
  9. TAKEPRON [Concomitant]
     Dosage: DOSE FORM: PERORAL AGENT
     Route: 048
  10. TOCILIZUMAB [Suspect]
     Route: 041
     Dates: start: 20090508, end: 20090508
  11. TOCILIZUMAB [Suspect]
     Route: 041
     Dates: start: 20090703, end: 20090703
  12. BREDININ [Suspect]
     Indication: RHEUMATOID ARTHRITIS
     Dosage: DOSE FORM: PERORAL AGENT
     Route: 048
     Dates: start: 20090205
  13. RIMATIL [Suspect]
     Indication: RHEUMATOID ARTHRITIS
     Route: 048
     Dates: start: 20090205
  14. FOLIC ACID [Concomitant]
     Dosage: DOSE FORM: PERORAL AGENT
     Route: 048
     Dates: start: 20090205
  15. DIOVAN [Concomitant]
     Route: 048
  16. DOXAZOSIN MESYLATE [Concomitant]
     Dosage: DOSE FORM: PERORAL AGENT
     Route: 048
  17. TOCILIZUMAB [Suspect]
     Indication: RHEUMATOID ARTHRITIS
     Route: 041
     Dates: start: 20090406, end: 20090406
  18. TOCILIZUMAB [Suspect]
     Route: 041
     Dates: start: 20090807, end: 20090807
  19. TOCILIZUMAB [Suspect]
     Route: 041
     Dates: start: 20091020, end: 20091020
  20. TOCILIZUMAB [Suspect]
     Route: 041
     Dates: start: 20091215, end: 20091215
  21. TOCILIZUMAB [Suspect]
     Route: 041
     Dates: start: 20100303, end: 20100303
  22. SELBEX [Concomitant]
     Route: 048
     Dates: start: 20090205
  23. RHEUMATREX [Concomitant]
     Dosage: DOSE FORM: PERORAL AGENT
     Route: 048
     Dates: end: 20090508
  24. METOLATE [Concomitant]
     Dosage: DOSE FORM: PERORAL AGENT
     Route: 048
     Dates: start: 20090509
  25. METHYCOBAL [Concomitant]
     Dosage: DOSE FORM: PERORAL AGENT
     Route: 048
     Dates: start: 20090205
  26. ISONIAZID [Concomitant]
     Dosage: DOSE FORM: PERORAL AGENT
     Route: 048
     Dates: start: 20090317

REACTIONS (4)
  - EMBOLIC CEREBRAL INFARCTION [None]
  - DIARRHOEA [None]
  - ECZEMA [None]
  - BLOOD UREA INCREASED [None]
